FAERS Safety Report 8602191-5 (Version None)
Quarter: 2012Q3

REPORT INFORMATION
  Report Type: 
  Country: None (occurrence: None)
  Receive Date: 20120817
  Receipt Date: 20120809
  Transmission Date: 20120928
  Serious: Yes (Other)
  Sender: FDA-Public Use
  Company Number: US-JNJFOC-20100805896

PATIENT
  Sex: Male

DRUGS (5)
  1. LEVAQUIN [Suspect]
     Indication: PNEUMONIA
     Route: 048
     Dates: start: 20071103, end: 20071107
  2. PREDNISONE TAB [Suspect]
     Indication: PRODUCT USED FOR UNKNOWN INDICATION
     Route: 048
  3. LEVAQUIN [Suspect]
     Indication: PULMONARY OEDEMA
     Route: 048
     Dates: start: 20071103, end: 20071107
  4. ZOCOR [Concomitant]
     Route: 065
  5. LEVAQUIN [Suspect]
     Route: 048

REACTIONS (3)
  - TRIGGER FINGER [None]
  - TENDON RUPTURE [None]
  - TENDONITIS [None]
